FAERS Safety Report 23437591 (Version 2)
Quarter: 2024Q1

REPORT INFORMATION
  Report Type: Spontaneous
  Country: FR (occurrence: FR)
  Receive Date: 20240124
  Receipt Date: 20240313
  Transmission Date: 20240410
  Serious: Yes (Hospitalization, Other)
  Sender: FDA-Public Use
  Company Number: FR-TAKEDA-2024TUS006708

PATIENT
  Age: 79 Year
  Sex: Male
  Weight: 94 kg

DRUGS (2)
  1. FEBUXOSTAT [Suspect]
     Active Substance: FEBUXOSTAT
     Indication: Gout
     Dosage: 1 DOSAGE FORM, QD
     Route: 065
     Dates: start: 202310, end: 20240103
  2. AZATHIOPRINE SODIUM [Interacting]
     Active Substance: AZATHIOPRINE SODIUM
     Indication: Corneal transplant
     Dosage: 50 MILLIGRAM, QD
     Route: 065

REACTIONS (4)
  - Pancytopenia [Unknown]
  - Myelodysplastic syndrome [Unknown]
  - Labelled drug-drug interaction issue [Recovered/Resolved]
  - Product use in unapproved indication [Recovered/Resolved]

NARRATIVE: CASE EVENT DATE: 20231001
